FAERS Safety Report 9427726 (Version 1)
Quarter: 2013Q3

REPORT INFORMATION
  Report Type: Spontaneous
  Country: US (occurrence: None)
  Receive Date: 20130729
  Receipt Date: 20130729
  Transmission Date: 20140515
  Serious: Yes (Disabling)
  Sender: FDA-Public Use
  Company Number: None

PATIENT
  Age: 76 None
  Sex: Female

DRUGS (8)
  1. CRESTOR [Suspect]
     Indication: BLOOD CHOLESTEROL ABNORMAL
     Route: 048
     Dates: start: 20071017, end: 20130603
  2. CARDVEDILOL [Concomitant]
  3. ALTACE [Concomitant]
  4. TYLENOL EXTRA STRENGTH [Concomitant]
  5. ASPIRIN [Concomitant]
  6. OMEGA 3 [Concomitant]
  7. VIT B-COMPLEX [Concomitant]
  8. DIGESTIVE ADVANTAGE GAS FORMULA [Concomitant]

REACTIONS (10)
  - Myalgia [None]
  - Asthenia [None]
  - Pain [None]
  - Burning sensation [None]
  - Middle insomnia [None]
  - Pain in extremity [None]
  - Arthralgia [None]
  - Pain in extremity [None]
  - Back pain [None]
  - Feeling abnormal [None]
